FAERS Safety Report 5748874-6 (Version None)
Quarter: 2008Q2

REPORT INFORMATION
  Report Type: 
  Country: None (occurrence: None)
  Receive Date: 20080522
  Receipt Date: 20080506
  Transmission Date: 20081010
  Serious: Yes (Hospitalization, Other)
  Sender: FDA-Public Use
  Company Number: 2008US000703

PATIENT
  Age: 57 Year
  Sex: Male
  Weight: 129.7 kg

DRUGS (29)
  1. PROGRAF [Suspect]
     Indication: LIVER TRANSPLANT
     Dosage: ORAL; 5 MG, UID/QD, ORAL; 4 MG, UID/QD, ORAL
     Route: 048
     Dates: start: 20080226, end: 20080227
  2. PROGRAF [Suspect]
     Indication: LIVER TRANSPLANT
     Dosage: ORAL; 5 MG, UID/QD, ORAL; 4 MG, UID/QD, ORAL
     Route: 048
     Dates: start: 20080213
  3. PROGRAF [Suspect]
     Indication: LIVER TRANSPLANT
     Dosage: ORAL; 5 MG, UID/QD, ORAL; 4 MG, UID/QD, ORAL
     Route: 048
     Dates: start: 20080225
  4. NEORAL [Concomitant]
  5. SIROLIMUS (SIROLIMUS) [Concomitant]
  6. LISINOPRIL [Concomitant]
  7. LASIX [Concomitant]
  8. SPIRONOLACTONE [Concomitant]
  9. VICODIN [Concomitant]
  10. CALCIUM (CALCIUM) [Concomitant]
  11. NEXIUM [Concomitant]
  12. FLOMAX (MORNIFLUMATE) [Concomitant]
  13. ZYPREXA [Concomitant]
  14. PREDNISONE TAB [Concomitant]
  15. VANCOMYCIN [Concomitant]
  16. ACYCLOVIR [Concomitant]
  17. DULCOLAX [Concomitant]
  18. CLOTRIMAZOLE [Concomitant]
  19. HEPARIN [Concomitant]
  20. INSULIN HUMALOG (INSULIN LISPRO) [Concomitant]
  21. MAGNESIUM OXIDE (MAGNESIUM OXIDE) [Concomitant]
  22. REGLAN [Concomitant]
  23. MULTIVITAMIN [Concomitant]
  24. CELLCEPT [Concomitant]
  25. NYSTATIN [Concomitant]
  26. FRAGMIN [Concomitant]
  27. TRAUMEEL S (HOMEOPATICS NOS) [Concomitant]
  28. TYLENOL [Concomitant]
  29. PERIANAL OINTMENT [Concomitant]

REACTIONS (16)
  - APRAXIA [None]
  - ASCITES [None]
  - ASTHENIA [None]
  - CEREBRAL ATROPHY [None]
  - DRUG TOXICITY [None]
  - DYSARTHRIA [None]
  - DYSPHASIA [None]
  - MUSCULAR WEAKNESS [None]
  - MYOPATHY [None]
  - NEUROTOXICITY [None]
  - OEDEMA PERIPHERAL [None]
  - ORAL CANDIDIASIS [None]
  - SEPSIS [None]
  - TOXIC ENCEPHALOPATHY [None]
  - URINARY RETENTION [None]
  - URINARY TRACT INFECTION [None]
